FAERS Safety Report 25651047 (Version 2)
Quarter: 2025Q3

REPORT INFORMATION
  Report Type: Spontaneous
  Country: JP (occurrence: JP)
  Receive Date: 20250806
  Receipt Date: 20250905
  Transmission Date: 20251020
  Serious: Yes (Other)
  Sender: SANOFI AVENTIS
  Company Number: JP-SA-2025SA228899

PATIENT
  Age: 70 Year
  Sex: Female

DRUGS (2)
  1. CLOPIDOGREL BISULFATE [Suspect]
     Active Substance: CLOPIDOGREL BISULFATE
     Indication: Cerebral infarction
  2. CANDESARTAN [Concomitant]
     Active Substance: CANDESARTAN
     Indication: Cerebral infarction

REACTIONS (4)
  - Pulmonary toxicity [Recovering/Resolving]
  - Respiratory distress [Recovered/Resolved]
  - Malaise [Recovering/Resolving]
  - Organising pneumonia [Recovering/Resolving]
